FAERS Safety Report 6160536-2 (Version None)
Quarter: 2009Q2

REPORT INFORMATION
  Report Type: 
  Country: None (occurrence: None)
  Receive Date: 20090415
  Receipt Date: 20090415
  Transmission Date: 20091009
  Serious: Yes (Other)
  Sender: FDA-Public Use
  Company Number: None

PATIENT
  Age: 38 Year
  Sex: Male
  Weight: 108.8633 kg

DRUGS (1)
  1. CHANTIX [Suspect]
     Indication: SMOKING CESSATION THERAPY
     Dates: start: 20080521, end: 20080721

REACTIONS (4)
  - AGGRESSION [None]
  - DISSOCIATION [None]
  - MOOD ALTERED [None]
  - SELF-INJURIOUS IDEATION [None]
